FAERS Safety Report 18701101 (Version 2)
Quarter: 2021Q2

REPORT INFORMATION
  Report Type: Spontaneous
  Country: US (occurrence: US)
  Receive Date: 20210105
  Receipt Date: 20210601
  Transmission Date: 20210717
  Serious: Yes (Death, Life-Threatening, Hospitalization, Other)
  Sender: FDA-Public Use
  Company Number: US-ACCORD-213379

PATIENT
  Age: 39 Year
  Sex: Female

DRUGS (6)
  1. GEMCITABINE. [Suspect]
     Active Substance: GEMCITABINE
     Indication: LYMPHOPROLIFERATIVE DISORDER
  2. METHYLPREDNISOLONE. [Suspect]
     Active Substance: METHYLPREDNISOLONE
     Indication: HODGKIN^S DISEASE
  3. GEMCITABINE. [Suspect]
     Active Substance: GEMCITABINE
     Indication: HODGKIN^S DISEASE
  4. METHYLPREDNISOLONE. [Suspect]
     Active Substance: METHYLPREDNISOLONE
     Indication: LYMPHOPROLIFERATIVE DISORDER
  5. HYDROXYCHLOROQUINE [Concomitant]
     Active Substance: HYDROXYCHLOROQUINE
     Indication: RHEUMATOID ARTHRITIS
  6. ACETYLCYSTEINE. [Concomitant]
     Active Substance: ACETYLCYSTEINE

REACTIONS (5)
  - Off label use [Unknown]
  - Haemodynamic instability [Fatal]
  - Drug intolerance [Unknown]
  - Epistaxis [Fatal]
  - Thrombocytopenia [Fatal]
